FAERS Safety Report 8990464 (Version 1)
Quarter: 2012Q4

REPORT INFORMATION
  Report Type: Report from Study
  Country: BE (occurrence: BE)
  Receive Date: 20121228
  Receipt Date: 20121228
  Transmission Date: 20130627
  Serious: Yes (Other)
  Sender: FDA-Public Use
  Company Number: BE-PFIZER INC-2012321869

PATIENT
  Age: 46 Year
  Sex: Female

DRUGS (2)
  1. EXEMESTANE [Suspect]
     Indication: BREAST CANCER
     Dosage: 25 mg
     Route: 048
     Dates: start: 20090830
  2. TRIPTORELIN PAMOATE [Suspect]
     Indication: BREAST CANCER
     Dosage: 3.75 mg
     Route: 030
     Dates: start: 20090715, end: 20110223

REACTIONS (1)
  - Deep vein thrombosis [Not Recovered/Not Resolved]
